FAERS Safety Report 8947418 (Version 1)
Quarter: 2012Q4

REPORT INFORMATION
  Report Type: 
  Country: TW (occurrence: TW)
  Receive Date: 20121205
  Receipt Date: 20121205
  Transmission Date: 20130627
  Serious: Yes (Death)
  Sender: FDA-Public Use
  Company Number: TW-BAYER-2012-124119

PATIENT
  Age: 89 Year
  Sex: Male

DRUGS (1)
  1. NEXAVAR [Suspect]
     Indication: HEPATIC CANCER METASTATIC

REACTIONS (4)
  - Cardiac arrest [Fatal]
  - Acute respiratory failure [Fatal]
  - Cardiac failure [Fatal]
  - Acute myocardial infarction [Fatal]
